FAERS Safety Report 4520703-8 (Version None)
Quarter: 2004Q4

REPORT INFORMATION
  Report Type: 
  Country: None (occurrence: None)
  Receive Date: 20041207
  Receipt Date: 20041129
  Transmission Date: 20050328
  Serious: Yes (Hospitalization)
  Sender: FDA-Public Use
  Company Number: DE-MERCK-0412DEU00007

PATIENT
  Age: 66 Year
  Sex: Female

DRUGS (5)
  1. VIOXX [Suspect]
     Indication: OSTEOARTHRITIS
     Route: 048
     Dates: start: 20040802
  2. VIOXX [Suspect]
     Indication: SPONDYLOSIS
     Route: 048
     Dates: start: 20040802
  3. ATORVASTATIN CALCIUM [Concomitant]
     Route: 048
  4. ASPIRIN [Concomitant]
     Route: 048
  5. ESOMEPRAZOLE MAGNESIUM [Concomitant]
     Route: 048

REACTIONS (1)
  - CEREBROVASCULAR ACCIDENT [None]
